FAERS Safety Report 9485326 (Version 1)
Quarter: 2013Q3

REPORT INFORMATION
  Report Type: Spontaneous
  Country: CA (occurrence: CA)
  Receive Date: 20130828
  Receipt Date: 20130828
  Transmission Date: 20140515
  Serious: Yes (Other)
  Sender: FDA-Public Use
  Company Number: CA-ROCHE-1265337

PATIENT
  Age: 43 Year
  Sex: Female

DRUGS (7)
  1. XOLAIR [Suspect]
     Indication: ASTHMA
     Route: 058
     Dates: start: 20121128, end: 20121212
  2. XOLAIR [Suspect]
     Route: 058
     Dates: start: 20121226
  3. PREDNISONE [Suspect]
     Indication: PRODUCT USED FOR UNKNOWN INDICATION
     Route: 065
  4. ZENHALE [Concomitant]
  5. ALVESCO [Concomitant]
  6. SINGULAIR [Concomitant]
  7. OMNARIS [Concomitant]

REACTIONS (12)
  - Diabetes mellitus [Unknown]
  - Injection site pruritus [Recovered/Resolved]
  - Injection site pain [Recovered/Resolved]
  - Injection site erythema [Recovered/Resolved]
  - Sinusitis [Recovering/Resolving]
  - Dry throat [Unknown]
  - Contusion [Not Recovered/Not Resolved]
  - Vision blurred [Recovered/Resolved]
  - Oropharyngeal pain [Recovered/Resolved]
  - Cough [Unknown]
  - Fatigue [Unknown]
  - Injection site swelling [Unknown]
